FAERS Safety Report 7083507-0 (Version None)
Quarter: 2010Q4

REPORT INFORMATION
  Report Type: 
  Country: None (occurrence: None)
  Receive Date: 20101103
  Receipt Date: 20101103
  Transmission Date: 20110411
  Serious: No
  Sender: FDA-Public Use
  Company Number: None

PATIENT
  Age: 63 Year
  Sex: Female
  Weight: 43.0917 kg

DRUGS (1)
  1. FENTANYL [Suspect]
     Indication: PAIN
     Dosage: TRANSDERM
     Route: 062

REACTIONS (5)
  - CLUSTER HEADACHE [None]
  - DEPRESSION [None]
  - MIGRAINE [None]
  - PRURITUS [None]
  - TINNITUS [None]
